FAERS Safety Report 16981911 (Version 2)
Quarter: 2019Q4

REPORT INFORMATION
  Report Type: Spontaneous
  Country: PT (occurrence: PT)
  Receive Date: 20191101
  Receipt Date: 20191223
  Transmission Date: 20200122
  Serious: Yes (Other)
  Sender: FDA-Public Use
  Company Number: PT-AMGEN-PRTSP2019177945

PATIENT
  Age: 49 Year
  Sex: Female
  Weight: 103 kg

DRUGS (7)
  1. DEFLAZACORT [Concomitant]
     Active Substance: DEFLAZACORT
     Dosage: 12 MILLIGRAM, QD
     Route: 048
  2. ACITRETIN. [Concomitant]
     Active Substance: ACITRETIN
     Dosage: UNK
     Route: 048
  3. BETAMETHASONE;CALCIPOTRIOL [Concomitant]
     Dosage: UNK
  4. CALCITRIOL. [Concomitant]
     Active Substance: CALCITRIOL
     Dosage: UNK, CAPSULE
     Route: 048
  5. PSODERMIL [Concomitant]
     Dosage: UNK
  6. AMGEVITA [Suspect]
     Active Substance: ADALIMUMAB
     Indication: PSORIASIS
     Dosage: 40 MILLIGRAM, Q2WK
     Route: 058
     Dates: start: 20190806, end: 20190806
  7. CALCITRIOL. [Concomitant]
     Active Substance: CALCITRIOL
     Dosage: UNK, CREAM, CUTANEOUS

REACTIONS (3)
  - Drug ineffective [Recovered/Resolved]
  - Toxic skin eruption [Recovering/Resolving]
  - Psoriasis [Recovering/Resolving]

NARRATIVE: CASE EVENT DATE: 20190806
